FAERS Safety Report 7292306-6 (Version None)
Quarter: 2011Q1

REPORT INFORMATION
  Report Type: 
  Country: None (occurrence: None)
  Receive Date: 20110210
  Receipt Date: 20110210
  Transmission Date: 20110831
  Serious: Yes (Other)
  Sender: FDA-Public Use
  Company Number: None

PATIENT
  Age: 35 Year
  Sex: Female
  Weight: 47.6277 kg

DRUGS (2)
  1. RESTASIS [Suspect]
     Indication: DRY EYE
     Dosage: 1 DROP 2X/DAY EYE DROPS
     Dates: start: 20110129
  2. RESTASIS [Suspect]
     Indication: DRY EYE
     Dosage: 1 DROP 2X/DAY EYE DROPS
     Dates: start: 20101106

REACTIONS (2)
  - TINNITUS [None]
  - NASOPHARYNGITIS [None]
